FAERS Safety Report 14174900 (Version 1)
Quarter: 2017Q4

REPORT INFORMATION
  Report Type: Spontaneous
  Country: US (occurrence: US)
  Receive Date: 20171109
  Receipt Date: 20171109
  Transmission Date: 20180321
  Serious: No
  Sender: FDA-Public Use
  Company Number: US-SA-2017SA149083

PATIENT
  Age: 8 Year
  Sex: Female

DRUGS (3)
  1. CHILDRENS XYZAL ALLERGY 24HR [Suspect]
     Active Substance: LEVOCETIRIZINE DIHYDROCHLORIDE
     Indication: HYPERSENSITIVITY
     Dosage: ONE DOSE
     Route: 048
     Dates: start: 20170808, end: 20170808
  2. CHILDRENS XYZAL ALLERGY 24HR [Suspect]
     Active Substance: LEVOCETIRIZINE DIHYDROCHLORIDE
     Indication: ASTHMA
     Dosage: ONE DOSE
     Route: 048
     Dates: start: 20170808, end: 20170808
  3. CAFFEINE. [Concomitant]
     Active Substance: CAFFEINE

REACTIONS (1)
  - Somnolence [Not Recovered/Not Resolved]
